FAERS Safety Report 4420114-X (Version None)
Quarter: 2004Q3

REPORT INFORMATION
  Report Type: 
  Country: None (occurrence: None)
  Receive Date: 20040809
  Receipt Date: 20040322
  Transmission Date: 20050211
  Serious: No
  Sender: FDA-Public Use
  Company Number: US-GLAXOSMITHKLINE-A0503841A

PATIENT
  Sex: Female

DRUGS (6)
  1. PAXIL [Suspect]
     Indication: DEPRESSION
     Dosage: 10MG PER DAY
     Route: 048
  2. VITAMIN E [Concomitant]
  3. VENTOLIN [Concomitant]
  4. ACTONEL [Concomitant]
  5. THYROID MEDICATION [Concomitant]
  6. UNKNOWN MEDICATION [Concomitant]
     Indication: BLOOD CHOLESTEROL INCREASED

REACTIONS (3)
  - ABNORMAL DREAMS [None]
  - INSOMNIA [None]
  - WEIGHT INCREASED [None]
